FAERS Safety Report 17756398 (Version 1)
Quarter: 2020Q2

REPORT INFORMATION
  Report Type: Spontaneous
  Country: FR (occurrence: FR)
  Receive Date: 20200507
  Receipt Date: 20200507
  Transmission Date: 20200714
  Serious: Yes (Hospitalization)
  Sender: FDA-Public Use
  Company Number: FR-CADILA HEALTHCARE LIMITED-FR-ZYDUS-022414

PATIENT

DRUGS (51)
  1. LEVOFLOXACIN. [Suspect]
     Active Substance: LEVOFLOXACIN
     Indication: DIABETIC FOOT
     Dosage: 750 MILLIGRAM,(INTERVAL :1 DAYS)
     Route: 048
     Dates: start: 20171218, end: 20180126
  2. TARGOCID [Suspect]
     Active Substance: TEICOPLANIN
     Indication: DIABETIC FOOT
     Dosage: 24 MILLIGRAM/KILOGRAM,(INTERVAL :1 DAYS)
     Route: 042
     Dates: start: 20180111, end: 20180126
  3. LANSOPRAZOLE. [Concomitant]
     Active Substance: LANSOPRAZOLE
     Route: 048
  4. KARDEGIC [Concomitant]
     Active Substance: ASPIRIN DL-LYSINE
     Dosage: POWDER FOR ORAL SOLUTION IN SACHET-DOSE
     Route: 048
  5. ISOPHANE INSULIN [Concomitant]
     Active Substance: INSULIN NOS
     Route: 048
  6. NOVORAPID [Concomitant]
     Active Substance: INSULIN ASPART
     Route: 048
  7. DIFFU K [Concomitant]
     Active Substance: POTASSIUM CHLORIDE
     Route: 048
  8. LOVENOX [Concomitant]
     Active Substance: ENOXAPARIN SODIUM
     Route: 048
  9. RAMIPRIL. [Concomitant]
     Active Substance: RAMIPRIL
     Route: 048
  10. TEMESTA [Concomitant]
     Dosage: 1 DOSAGE FORM,TABLET BREACKABLE,(INTERVAL :1 DAYS)
     Route: 048
  11. PHOSPHONEUROS [Concomitant]
     Active Substance: CALCIUM PHOSPHATE, DIBASIC, ANHYDROUS\MAGNESIUM GLYCEROPHOSPHATE\PHOSPHORIC ACID\SODIUM PHOSPHATE, DIBASIC
     Route: 048
  12. RIFAMPICINE [Suspect]
     Active Substance: RIFAMPIN
     Indication: DIABETIC FOOT
     Dosage: 900 MILLIGRAM,(INTERVAL :1 DAYS)
     Route: 048
     Dates: start: 20171228, end: 20180105
  13. FOLINORAL [Concomitant]
     Active Substance: LEUCOVORIN CALCIUM
     Dosage: 1 DOSAGE FORM
     Route: 048
  14. CORDARONE [Concomitant]
     Active Substance: AMIODARONE HYDROCHLORIDE
     Route: 048
  15. ISOPHANE INSULIN [Concomitant]
     Active Substance: INSULIN NOS
     Dosage: 12 INTERNATIONAL UNIT,(INTERVAL :1 DAYS)
     Route: 048
  16. MAG 2 [Concomitant]
     Active Substance: MAGNESIUM
     Dosage: 6 DOSAGE FORM,(INTERVAL :1 DAYS)
     Route: 048
  17. MAG 2 [Concomitant]
     Active Substance: MAGNESIUM
     Route: 048
  18. LOVENOX [Concomitant]
     Active Substance: ENOXAPARIN SODIUM
     Route: 048
  19. LOVENOX [Concomitant]
     Active Substance: ENOXAPARIN SODIUM
     Dosage: 4000 INTERNATIONAL UNIT,(INTERVAL :1 DAYS)
     Route: 048
  20. ZYVOXID [Suspect]
     Active Substance: LINEZOLID
     Indication: DIABETIC FOOT
     Dosage: 1200 MILLIGRAM,(INTERVAL :1 DAYS)
     Route: 048
     Dates: start: 20171228, end: 20180111
  21. CRESTOR [Concomitant]
     Active Substance: ROSUVASTATIN CALCIUM
     Dosage: 5 MILLIGRAM,(INTERVAL :1 DAYS)
     Route: 048
  22. AMLOR [Concomitant]
     Active Substance: AMLODIPINE BESYLATE
     Route: 048
  23. CORDARONE [Concomitant]
     Active Substance: AMIODARONE HYDROCHLORIDE
     Dosage: 100 MILLIGRAM,(INTERVAL :1 DAYS)
     Route: 048
  24. PHOSPHONEUROS [Concomitant]
     Active Substance: CALCIUM PHOSPHATE, DIBASIC, ANHYDROUS\MAGNESIUM GLYCEROPHOSPHATE\PHOSPHORIC ACID\SODIUM PHOSPHATE, DIBASIC
     Dosage: 150,(INTERVAL :1 DAYS)
     Route: 048
  25. LANSOPRAZOLE. [Concomitant]
     Active Substance: LANSOPRAZOLE
     Dosage: 15 MILLIGRAM,(INTERVAL :1 DAYS)
     Route: 048
  26. KARDEGIC [Concomitant]
     Active Substance: ASPIRIN DL-LYSINE
     Dosage: POWDER FOR ORAL SOLUTION IN SACHET-DOSE
     Route: 048
  27. DIFFU K [Concomitant]
     Active Substance: POTASSIUM CHLORIDE
     Route: 048
  28. AMLOR [Concomitant]
     Active Substance: AMLODIPINE BESYLATE
     Route: 048
  29. AMLOR [Concomitant]
     Active Substance: AMLODIPINE BESYLATE
     Route: 048
  30. RAMIPRIL. [Concomitant]
     Active Substance: RAMIPRIL
     Dosage: 2.5 MILLIGRAM,(INTERVAL :1 DAYS)
     Route: 048
  31. BISOPROLOL [Concomitant]
     Active Substance: BISOPROLOL
     Route: 048
  32. KARDEGIC [Concomitant]
     Active Substance: ASPIRIN DL-LYSINE
     Dosage: POWDER FOR ORAL SOLUTION IN SACHET-DOSE
     Route: 048
  33. DIFFU K [Concomitant]
     Active Substance: POTASSIUM CHLORIDE
     Dosage: 2 MILLIGRAM,(INTERVAL :1 DAYS)
     Route: 048
  34. LASILIX [Concomitant]
     Active Substance: FUROSEMIDE
     Dosage: 1 DOSAGE FORM,(INTERVAL :1 DAYS)
  35. PHOSPHONEUROS [Concomitant]
     Active Substance: CALCIUM PHOSPHATE, DIBASIC, ANHYDROUS\MAGNESIUM GLYCEROPHOSPHATE\PHOSPHORIC ACID\SODIUM PHOSPHATE, DIBASIC
     Route: 048
  36. BISOPROLOL [Concomitant]
     Active Substance: BISOPROLOL
     Dosage: 1 DOSAGE FORM,(INTERVAL :1 DAYS)
     Route: 048
  37. NOVORAPID [Concomitant]
     Active Substance: INSULIN ASPART
     Route: 048
  38. CORDARONE [Concomitant]
     Active Substance: AMIODARONE HYDROCHLORIDE
     Route: 048
  39. PHOSPHONEUROS [Concomitant]
     Active Substance: CALCIUM PHOSPHATE, DIBASIC, ANHYDROUS\MAGNESIUM GLYCEROPHOSPHATE\PHOSPHORIC ACID\SODIUM PHOSPHATE, DIBASIC
     Route: 048
  40. DIFFU K [Concomitant]
     Active Substance: POTASSIUM CHLORIDE
     Route: 048
  41. FOLINORAL [Concomitant]
     Active Substance: LEUCOVORIN CALCIUM
     Dosage: 1 DOSAGE FORM,(INTERVAL :1 DAYS)
     Route: 048
  42. CRESTOR [Concomitant]
     Active Substance: ROSUVASTATIN CALCIUM
     Dosage: 5 MILLIGRAM,(INTERVAL :1 DAYS)
     Route: 048
  43. AMLOR [Concomitant]
     Active Substance: AMLODIPINE BESYLATE
     Dosage: 1 DOSAGE FORM,(INTERVAL :1 DAYS)
     Route: 048
  44. CORDARONE [Concomitant]
     Active Substance: AMIODARONE HYDROCHLORIDE
     Route: 048
  45. TEMESTA [Concomitant]
     Dosage: TABLET BREACKABLE
     Route: 048
  46. KARDEGIC [Concomitant]
     Active Substance: ASPIRIN DL-LYSINE
     Dosage: 1 DOSAGE FORM,POWDER FOR ORAL SOLUTION IN SACHET-DOSE,(INTERVAL :1 DAYS)
     Route: 048
  47. NOVORAPID [Concomitant]
     Active Substance: INSULIN ASPART
     Route: 048
  48. NOVORAPID [Concomitant]
     Active Substance: INSULIN ASPART
     Route: 048
  49. MAG 2 [Concomitant]
     Active Substance: MAGNESIUM
     Route: 048
  50. MAG 2 [Concomitant]
     Active Substance: MAGNESIUM
     Route: 048
  51. LOVENOX [Concomitant]
     Active Substance: ENOXAPARIN SODIUM
     Route: 048

REACTIONS (4)
  - Neutropenia [Not Recovered/Not Resolved]
  - Petechiae [Not Recovered/Not Resolved]
  - Thrombocytopenia [Recovered/Resolved]
  - Lymphopenia [Not Recovered/Not Resolved]

NARRATIVE: CASE EVENT DATE: 20180105
